FAERS Safety Report 17359822 (Version 2)
Quarter: 2020Q3

REPORT INFORMATION
  Report Type: Spontaneous
  Country: US (occurrence: US)
  Receive Date: 20200203
  Receipt Date: 20200915
  Transmission Date: 20201102
  Serious: Yes (Other)
  Sender: FDA-Public Use
  Company Number: US-GILEAD-2020-0448779

PATIENT
  Age: 58 Year
  Sex: Male
  Weight: 72.56 kg

DRUGS (31)
  1. TRUVADA [Suspect]
     Active Substance: EMTRICITABINE\TENOFOVIR DISOPROXIL FUMARATE
     Indication: HIV INFECTION
     Dosage: UNK
     Route: 048
     Dates: start: 2012
  2. REMERON [Concomitant]
     Active Substance: MIRTAZAPINE
  3. RETROVIR [Concomitant]
     Active Substance: ZIDOVUDINE
  4. CALCIUM [Concomitant]
     Active Substance: CALCIUM
  5. DESYREL [Concomitant]
     Active Substance: TRAZODONE HYDROCHLORIDE
  6. VALACICLOVIR [Concomitant]
     Active Substance: VALACYCLOVIR HYDROCHLORIDE
  7. DRONABINOL. [Concomitant]
     Active Substance: DRONABINOL
  8. CIALIS [Concomitant]
     Active Substance: TADALAFIL
  9. DESCOVY [Concomitant]
     Active Substance: EMTRICITABINE\TENOFOVIR ALAFENAMIDE FUMARATE
  10. TRIZIVIR [Concomitant]
     Active Substance: ABACAVIR SULFATE\LAMIVUDINE\ZIDOVUDINE
  11. PROSCAR [Concomitant]
     Active Substance: FINASTERIDE
  12. PROTONIX [OMEPRAZOLE] [Concomitant]
     Active Substance: OMEPRAZOLE
  13. VIRAMUNE [Concomitant]
     Active Substance: NEVIRAPINE
  14. VITAMIN D [COLECALCIFEROL] [Concomitant]
     Active Substance: CHOLECALCIFEROL
  15. PROZAC [Concomitant]
     Active Substance: FLUOXETINE HYDROCHLORIDE
  16. PREZISTA [Concomitant]
     Active Substance: DARUNAVIR ETHANOLATE
  17. DIFLUCAN [Concomitant]
     Active Substance: FLUCONAZOLE
  18. PENGASAPAN [Concomitant]
  19. EMTRIVA [Concomitant]
     Active Substance: EMTRICITABINE
  20. FUZEON [Concomitant]
     Active Substance: ENFUVIRTIDE
  21. TIVICAY [Concomitant]
     Active Substance: DOLUTEGRAVIR SODIUM
  22. ZETIA [Concomitant]
     Active Substance: EZETIMIBE
  23. INVIRASE [Concomitant]
     Active Substance: SAQUINAVIR MESYLATE
  24. VIRACEPT [Concomitant]
     Active Substance: NELFINAVIR MESYLATE
  25. ZERIT [Concomitant]
     Active Substance: STAVUDINE
  26. TRUVADA [Suspect]
     Active Substance: EMTRICITABINE\TENOFOVIR DISOPROXIL FUMARATE
     Dosage: UNK
     Dates: start: 20151123, end: 20160726
  27. NORVIR [Concomitant]
     Active Substance: RITONAVIR
  28. REYATAZ [Concomitant]
     Active Substance: ATAZANAVIR SULFATE
  29. TRIUMEQ [Concomitant]
     Active Substance: ABACAVIR SULFATE\DOLUTEGRAVIR SODIUM\LAMIVUDINE
  30. LOMOTIL [LOPERAMIDE HYDROCHLORIDE] [Concomitant]
     Active Substance: LOPERAMIDE HYDROCHLORIDE
  31. FLOMAX [Concomitant]
     Active Substance: TAMSULOSIN HYDROCHLORIDE

REACTIONS (8)
  - Economic problem [Not Recovered/Not Resolved]
  - Depression [Unknown]
  - Emotional distress [Not Recovered/Not Resolved]
  - Anhedonia [Not Recovered/Not Resolved]
  - Anxiety [Not Recovered/Not Resolved]
  - Foot fracture [Unknown]
  - Osteopenia [Not Recovered/Not Resolved]
  - Pain [Not Recovered/Not Resolved]

NARRATIVE: CASE EVENT DATE: 2017
